FAERS Safety Report 18790735 (Version 1)
Quarter: 2021Q1

REPORT INFORMATION
  Report Type: Spontaneous
  Country: US (occurrence: US)
  Receive Date: 20210126
  Receipt Date: 20210126
  Transmission Date: 20210419
  Serious: No
  Sender: FDA-Public Use
  Company Number: US-PFIZER INC-2021050938

PATIENT
  Age: 82 Year
  Sex: Male

DRUGS (2)
  1. INLYTA [Suspect]
     Active Substance: AXITINIB
     Dosage: 2.5 MG, 2X/DAY
  2. INLYTA [Suspect]
     Active Substance: AXITINIB
     Dosage: 5 MG, UNK
     Dates: start: 20191030

REACTIONS (2)
  - Off label use [Unknown]
  - Weight decreased [Unknown]
